FAERS Safety Report 10947694 (Version 2)
Quarter: 2015Q1

REPORT INFORMATION
  Report Type: Spontaneous
  Country: ES (occurrence: ES)
  Receive Date: 20150324
  Receipt Date: 20150327
  Transmission Date: 20150721
  Serious: Yes (Hospitalization, Other)
  Sender: FDA-Public Use
  Company Number: ES-AMGEN-ESPSP2014009231

PATIENT
  Age: 62 Year
  Sex: Female
  Weight: 73 kg

DRUGS (12)
  1. LEFLUNOMIDA MEDAC [Suspect]
     Active Substance: LEFLUNOMIDE
     Indication: RHEUMATOID ARTHRITIS
     Dosage: 10 MG, ONCE DAILY (EVERY 24 HOURS)
     Route: 065
  2. IMUREL                             /00001501/ [Concomitant]
     Active Substance: AZATHIOPRINE SODIUM
     Dosage: UNK
  3. MANIDIPINO STADA [Concomitant]
     Indication: HYPERTENSION
     Dosage: UNK, 1X/DAY (1/2 DOSAGE FORM EVERY 24 HOURS, AT NIGHTS)
  4. ENBREL [Suspect]
     Active Substance: ETANERCEPT
     Dosage: 50 MG, WEEKLY
     Route: 058
  5. VIMOVO [Concomitant]
     Active Substance: ESOMEPRAZOLE MAGNESIUM\NAPROXEN
     Indication: INFLAMMATION
     Dosage: UNK
  6. ENBREL [Suspect]
     Active Substance: ETANERCEPT
     Dosage: 50 MG, WEEKLY
     Route: 058
  7. BENICAR [Concomitant]
     Active Substance: OLMESARTAN MEDOXOMIL
     Indication: HYPERTENSION
     Dosage: 40 MG, 1X/DAY (EVERY 24 HOURS, AT NIGHTS)
  8. ENBREL [Suspect]
     Active Substance: ETANERCEPT
     Indication: RHEUMATOID ARTHRITIS
     Dosage: 50 MG, WEEKLY
     Route: 058
     Dates: start: 20140121, end: 2014
  9. ENBREL [Suspect]
     Active Substance: ETANERCEPT
     Dosage: 50 MG, QWK
     Route: 058
  10. LOBIVON [Concomitant]
     Active Substance: NEBIVOLOL HYDROCHLORIDE
     Indication: HYPERTENSION
     Dosage: 5 MG, 1X/DAY (EVERY 24 HOURS, IN THE MORNINGS)
  11. DEZACOR [Concomitant]
     Active Substance: DEFLAZACORT
     Dosage: UNK
  12. ENBREL [Suspect]
     Active Substance: ETANERCEPT
     Dosage: 50 MG, QWK
     Route: 058

REACTIONS (18)
  - Cyst rupture [Unknown]
  - Rash macular [Recovered/Resolved]
  - Erythema [Unknown]
  - Blood urine present [Unknown]
  - Urticaria [Recovered/Resolved]
  - Dry skin [Recovered/Resolved]
  - Pruritus [Unknown]
  - Acne [Recovered/Resolved]
  - Rash [Recovered/Resolved]
  - Ligament rupture [Unknown]
  - Pyrexia [Unknown]
  - Injection site inflammation [Recovered/Resolved]
  - Injection site discomfort [Recovered/Resolved]
  - Nasopharyngitis [Unknown]
  - Generalised erythema [Recovered/Resolved]
  - Pain [Unknown]
  - Injection site pruritus [Recovered/Resolved]
  - Injection site erythema [Recovered/Resolved]

NARRATIVE: CASE EVENT DATE: 2014
